FAERS Safety Report 4525062-2 (Version None)
Quarter: 2004Q4

REPORT INFORMATION
  Report Type: 
  Country: None (occurrence: None)
  Receive Date: 20041213
  Receipt Date: 20041011
  Transmission Date: 20050328
  Serious: Yes (Hospitalization)
  Sender: FDA-Public Use
  Company Number: US-MERCK-0410USA01808

PATIENT
  Age: 54 Year
  Sex: Female

DRUGS (3)
  1. DOLOBID [Suspect]
     Indication: FIBROMYALGIA
     Route: 048
     Dates: start: 20020912, end: 20020925
  2. DOLOBID [Suspect]
     Route: 048
     Dates: start: 20020926
  3. ZOLOFT [Concomitant]
     Route: 065

REACTIONS (9)
  - ACUTE RESPIRATORY DISTRESS SYNDROME [None]
  - ATRIAL FIBRILLATION [None]
  - DEPRESSION [None]
  - OESOPHAGEAL STENOSIS [None]
  - PNEUMONIA [None]
  - RESPIRATORY FAILURE [None]
  - SEPSIS [None]
  - STEVENS-JOHNSON SYNDROME [None]
  - TOXIC EPIDERMAL NECROLYSIS [None]
